FAERS Safety Report 4346150-X (Version None)
Quarter: 2004Q2

REPORT INFORMATION
  Report Type: 
  Country: None (occurrence: None)
  Receive Date: 20040421
  Receipt Date: 20040409
  Transmission Date: 20050107
  Serious: Yes (Hospitalization, Disabling, Other)
  Sender: FDA-Public Use
  Company Number: 2004024490

PATIENT
  Age: 42 Year
  Sex: Male

DRUGS (5)
  1. VISTARIL [Suspect]
     Indication: PAIN MANAGEMENT
  2. NEURONTIN [Suspect]
     Indication: ILL-DEFINED DISORDER
     Dosage: 300 MG, ORAL
     Route: 048
  3. MEPERIDINE HYDROCHLORIDE [Suspect]
     Indication: PAIN MANAGEMENT
     Dosage: ORAL
     Route: 048
     Dates: start: 20000608
  4. OXYCODONE HCL [Suspect]
     Indication: ILL-DEFINED DISORDER
     Dosage: 20 MG (UNKNOWN), ORAL
     Route: 048
  5. TIZANIDINE HCL [Suspect]
     Indication: ILL-DEFINED DISORDER
     Dosage: 2 MG (UNKNOWN), ORAL
     Route: 048

REACTIONS (7)
  - EMBOLIA CUTIS MEDICAMENTOSA [None]
  - GAIT DISTURBANCE [None]
  - INJECTION SITE BURNING [None]
  - INJECTION SITE STINGING [None]
  - MEDICATION ERROR [None]
  - MUSCLE CRAMP [None]
  - NECROSIS [None]
